FAERS Safety Report 5425822-X (Version None)
Quarter: 2007Q3

REPORT INFORMATION
  Report Type: 
  Country: None (occurrence: None)
  Receive Date: 20070827
  Receipt Date: 20070815
  Transmission Date: 20080115
  Serious: Yes (Other)
  Sender: FDA-Public Use
  Company Number: PHEH2007US11221

PATIENT
  Age: 84 Year
  Sex: Female

DRUGS (5)
  1. DIOVAN HCT [Suspect]
     Indication: CARDIAC DISORDER
     Dosage: ONE TAB, QD,  80/12.5
     Route: 048
  2. ASPIRIN [Concomitant]
     Dosage: 81 MG, UNK
  3. NEXIUM [Concomitant]
     Indication: ASTHMA
  4. SINGULAIR [Concomitant]
     Indication: ASTHMA
  5. METOPROLOL SUCCINATE [Suspect]
     Dosage: 50 MG, QD
     Route: 048

REACTIONS (5)
  - ANAEMIA [None]
  - CARDIAC STRESS TEST [None]
  - DIZZINESS [None]
  - GASTROINTESTINAL HAEMORRHAGE [None]
  - PAIN IN EXTREMITY [None]
